FAERS Safety Report 8422289-4 (Version None)
Quarter: 2012Q2

REPORT INFORMATION
  Report Type: 
  Country: None (occurrence: None)
  Receive Date: 20120608
  Receipt Date: 20120607
  Transmission Date: 20120825
  Serious: Yes (Other)
  Sender: FDA-Public Use
  Company Number: CA-PURDUE-CAN-2012-0003076

PATIENT
  Age: 39 Year
  Sex: Male

DRUGS (5)
  1. MORPHINE SULFATE [Suspect]
     Indication: PAIN
     Dosage: 5 MG, UNK
     Route: 065
  2. MS CONTIN [Suspect]
     Indication: PAIN
     Route: 065
  3. MORPHINE SULFATE [Suspect]
     Indication: PAIN
     Route: 065
  4. OPIUM/NALOXONE TAB [Concomitant]
     Indication: PAIN
     Route: 065
  5. MORPHINE SULFATE [Suspect]
     Dosage: 500 MG, DAILY
     Route: 065

REACTIONS (8)
  - PAIN [None]
  - DRUG DEPENDENCE [None]
  - SPEECH DISORDER [None]
  - SOMNOLENCE [None]
  - HYPERAESTHESIA [None]
  - TREMOR [None]
  - CONFUSIONAL STATE [None]
  - DRUG WITHDRAWAL SYNDROME [None]
